FAERS Safety Report 23151911 (Version 7)
Quarter: 2024Q2

REPORT INFORMATION
  Report Type: Report from Study
  Country: US (occurrence: US)
  Receive Date: 20231107
  Receipt Date: 20240422
  Transmission Date: 20240716
  Serious: Yes (Hospitalization, Other)
  Sender: FDA-Public Use
  Company Number: US-ABBVIE-4326778

PATIENT
  Age: 35 Year
  Sex: Female
  Weight: 95.254 kg

DRUGS (10)
  1. HUMIRA [Suspect]
     Active Substance: ADALIMUMAB
     Indication: Colitis ulcerative
     Dosage: FORM STRENGTH: 40 MG/CITRATE FREE
     Route: 058
  2. HUMIRA [Suspect]
     Active Substance: ADALIMUMAB
     Dosage: FORM STRENGTH: 40 MG/CITRATE FREE
     Route: 058
     Dates: start: 20220811
  3. HUMIRA [Suspect]
     Active Substance: ADALIMUMAB
     Dosage: FORM STRENGTH: 40 MG/CITRATE FREE
     Route: 058
  4. HUMIRA [Suspect]
     Active Substance: ADALIMUMAB
     Dosage: FORM STRENGTH: 40 MG/CITRATE FREE
     Route: 058
  5. HUMIRA [Suspect]
     Active Substance: ADALIMUMAB
     Dosage: FORM STRENGTH: 40 MG. CF
     Route: 058
     Dates: start: 20220819
  6. NORETHINDRONE [Concomitant]
     Active Substance: NORETHINDRONE
     Indication: Contraception
  7. LEVOTHYROXINE SODIUM [Concomitant]
     Active Substance: LEVOTHYROXINE SODIUM
     Indication: Hypothyroidism
  8. LIOTHYRONINE SODIUM [Concomitant]
     Active Substance: LIOTHYRONINE SODIUM
     Indication: Autoimmune thyroiditis
  9. MESALAMINE [Concomitant]
     Active Substance: MESALAMINE
     Indication: Colitis ulcerative
     Dates: end: 20230710
  10. MESALAMINE [Concomitant]
     Active Substance: MESALAMINE
     Indication: Colitis ulcerative
     Dosage: FIRST ADMIN DATE: 2023

REACTIONS (30)
  - Obstructive pancreatitis [Recovered/Resolved]
  - Colitis ulcerative [Not Recovered/Not Resolved]
  - Blood iron decreased [Not Recovered/Not Resolved]
  - Urinary tract infection [Not Recovered/Not Resolved]
  - Fungal skin infection [Not Recovered/Not Resolved]
  - Abdominal pain upper [Recovered/Resolved]
  - Blood alkaline phosphatase increased [Unknown]
  - Amylase increased [Not Recovered/Not Resolved]
  - C-reactive protein increased [Not Recovered/Not Resolved]
  - Drug specific antibody present [Not Recovered/Not Resolved]
  - Lipase increased [Not Recovered/Not Resolved]
  - Dehydration [Recovered/Resolved]
  - Rectal haemorrhage [Not Recovered/Not Resolved]
  - Drug ineffective [Not Recovered/Not Resolved]
  - Arthritis [Recovering/Resolving]
  - Device leakage [Unknown]
  - Iron deficiency anaemia [Not Recovered/Not Resolved]
  - Mobility decreased [Recovering/Resolving]
  - Illness [Unknown]
  - Haematochezia [Not Recovered/Not Resolved]
  - White blood cell count increased [Not Recovered/Not Resolved]
  - Therapeutic product effect incomplete [Not Recovered/Not Resolved]
  - Abdominal distension [Recovering/Resolving]
  - Red blood cell sedimentation rate increased [Not Recovered/Not Resolved]
  - Onychomycosis [Not Recovered/Not Resolved]
  - COVID-19 [Unknown]
  - Inflammatory marker increased [Unknown]
  - Asthma [Not Recovered/Not Resolved]
  - Pancreatitis relapsing [Not Recovered/Not Resolved]
  - Gallbladder disorder [Not Recovered/Not Resolved]

NARRATIVE: CASE EVENT DATE: 20220725
